FAERS Safety Report 5190342-7 (Version None)
Quarter: 2006Q4

REPORT INFORMATION
  Report Type: 
  Country: None (occurrence: None)
  Receive Date: 20061222
  Receipt Date: 20060605
  Transmission Date: 20070319
  Serious: No
  Sender: FDA-Public Use
  Company Number: US-AMGEN-US181779

PATIENT
  Sex: Male

DRUGS (3)
  1. ARANESP [Suspect]
     Indication: MYELODYSPLASTIC SYNDROME
     Route: 065
     Dates: start: 20051101, end: 20051201
  2. PRINIVIL [Concomitant]
     Route: 065
  3. TENORMIN [Concomitant]
     Route: 065

REACTIONS (6)
  - COUGH [None]
  - DYSPNOEA [None]
  - FATIGUE [None]
  - INFLUENZA LIKE ILLNESS [None]
  - OEDEMA PERIPHERAL [None]
  - PYREXIA [None]
